FAERS Safety Report 5372367-1 (Version None)
Quarter: 2007Q2

REPORT INFORMATION
  Report Type: 
  Country: None (occurrence: None)
  Receive Date: 20070615
  Receipt Date: 20060824
  Transmission Date: 20071010
  Serious: Yes (Hospitalization)
  Sender: FDA-Public Use
  Company Number: 200617175US

PATIENT
  Age: 86 Year
  Sex: Female

DRUGS (9)
  1. LANTUS [Suspect]
     Dosage: 300 U ONCE IV
     Route: 042
     Dates: start: 20060824, end: 20060824
  2. ESOMEPRAZOLE MAGNESIUM [Suspect]
  3. HYDROCHLOROTHIAZIDE, LOSARTAN POTASSIUM (HYZAAR) [Concomitant]
  4. NITROGLYCERIN [Concomitant]
  5. ESTROGENS CONJUGATED (PREMARIN /00073001/) [Concomitant]
  6. VESICARE [Concomitant]
  7. PARACETAMOL, HYDROCODONE BITARTRATE (VICODIN) [Concomitant]
  8. SERTRALINE (ZOLOFT /01011401/) [Concomitant]
  9. NITROGLYCERIN [Concomitant]

REACTIONS (2)
  - ACCIDENTAL OVERDOSE [None]
  - BLOOD GLUCOSE DECREASED [None]
